FAERS Safety Report 7205218-0 (Version None)
Quarter: 2010Q4

REPORT INFORMATION
  Report Type: 
  Country: None (occurrence: None)
  Receive Date: 20101231
  Receipt Date: 20101223
  Transmission Date: 20110411
  Serious: No
  Sender: FDA-Public Use
  Company Number: US-BIOGENIDEC-2010BI040180

PATIENT
  Sex: Female

DRUGS (2)
  1. TYSABRI [Suspect]
     Indication: MULTIPLE SCLEROSIS
     Route: 042
     Dates: start: 20100226
  2. AMPYRA [Concomitant]

REACTIONS (25)
  - APHASIA [None]
  - BALANCE DISORDER [None]
  - CENTRAL NERVOUS SYSTEM LESION [None]
  - CLAUSTROPHOBIA [None]
  - COORDINATION ABNORMAL [None]
  - DRUG DOSE OMISSION [None]
  - DRUG INEFFECTIVE [None]
  - EAR DISCOMFORT [None]
  - FALL [None]
  - FATIGUE [None]
  - FEAR [None]
  - FEELING ABNORMAL [None]
  - GAIT DISTURBANCE [None]
  - GASTROINTESTINAL VIRAL INFECTION [None]
  - HEADACHE [None]
  - HYPERSOMNIA [None]
  - HYPOAESTHESIA [None]
  - MENOPAUSE [None]
  - MIGRAINE [None]
  - MULTIPLE SCLEROSIS [None]
  - NEPHROLITHIASIS [None]
  - NERVOUSNESS [None]
  - PAIN [None]
  - SENSORY DISTURBANCE [None]
  - VISUAL IMPAIRMENT [None]
